FAERS Safety Report 24102012 (Version 3)
Quarter: 2025Q1

REPORT INFORMATION
  Report Type: Report from Study
  Country: US (occurrence: US)
  Receive Date: 20240717
  Receipt Date: 20250124
  Transmission Date: 20250409
  Serious: Yes (Other)
  Sender: TAKEDA
  Company Number: US-TAKEDA-2022TUS072577

PATIENT
  Age: 61 Year
  Sex: Male
  Weight: 134 kg

DRUGS (3)
  1. GLASSIA [Suspect]
     Active Substance: .ALPHA.1-PROTEINASE INHIBITOR HUMAN
     Indication: Alpha-1 antitrypsin deficiency
  2. GLASSIA [Suspect]
     Active Substance: .ALPHA.1-PROTEINASE INHIBITOR HUMAN
  3. GLASSIA [Suspect]
     Active Substance: .ALPHA.1-PROTEINASE INHIBITOR HUMAN

REACTIONS (6)
  - Rhabdomyolysis [Recovering/Resolving]
  - Fall [Recovering/Resolving]
  - Walking aid user [Recovering/Resolving]
  - Lymphoedema [Unknown]
  - Product dose omission issue [Recovered/Resolved]
  - Insurance issue [Recovered/Resolved]

NARRATIVE: CASE EVENT DATE: 20221007
